FAERS Safety Report 4738110-1 (Version None)
Quarter: 2005Q3

REPORT INFORMATION
  Report Type: 
  Country: None (occurrence: None)
  Receive Date: 20050805
  Receipt Date: 20050729
  Transmission Date: 20060218
  Serious: Yes (Hospitalization)
  Sender: FDA-Public Use
  Company Number: 11931

PATIENT
  Age: 43 Year
  Sex: Female

DRUGS (1)
  1. METHYLENE BLUE [Suspect]
     Dosage: 50 MG IV
     Route: 042
     Dates: start: 20050630, end: 20050630

REACTIONS (5)
  - DIZZINESS [None]
  - DYSGEUSIA [None]
  - FEELING HOT [None]
  - NAUSEA [None]
  - PARAESTHESIA [None]
